FAERS Safety Report 5819222-8 (Version None)
Quarter: 2008Q3

REPORT INFORMATION
  Report Type: 
  Country: None (occurrence: None)
  Receive Date: 20080721
  Receipt Date: 20080721
  Transmission Date: 20090109
  Serious: Yes (Life-Threatening)
  Sender: FDA-Public Use
  Company Number: None

PATIENT

DRUGS (1)
  1. URSODIOL [Suspect]

REACTIONS (7)
  - ASCITES [None]
  - BRONCHITIS [None]
  - CHOLANGITIS [None]
  - DIARRHOEA [None]
  - PRURITUS [None]
  - PYREXIA [None]
  - VANISHING BILE DUCT SYNDROME [None]
